FAERS Safety Report 24558986 (Version 2)
Quarter: 2024Q4

REPORT INFORMATION
  Report Type: Spontaneous
  Country: CA (occurrence: CA)
  Receive Date: 20241029
  Receipt Date: 20241220
  Transmission Date: 20250114
  Serious: Yes (Other)
  Sender: ROCHE
  Company Number: CA-ROCHE-10000116929

PATIENT
  Age: 63 Year
  Sex: Male

DRUGS (2)
  1. RITUXIMAB [Suspect]
     Active Substance: RITUXIMAB
     Indication: Granulomatosis with polyangiitis
     Route: 042
  2. RITUXIMAB [Suspect]
     Active Substance: RITUXIMAB
     Route: 042

REACTIONS (9)
  - Disease progression [Unknown]
  - Drug ineffective [Unknown]
  - Immune system disorder [Unknown]
  - Lyme disease [Unknown]
  - Neuropathy peripheral [Unknown]
  - Chronic sinusitis [Unknown]
  - Demyelinating polyneuropathy [Unknown]
  - Ill-defined disorder [Unknown]
  - Neurosarcoidosis [Unknown]
